FAERS Safety Report 5647170-5 (Version None)
Quarter: 2008Q1

REPORT INFORMATION
  Report Type: 
  Country: None (occurrence: None)
  Receive Date: 20080228
  Receipt Date: 20080228
  Transmission Date: 20080703
  Serious: Yes (Hospitalization)
  Sender: FDA-Public Use
  Company Number: None

PATIENT
  Age: 84 Year
  Sex: Female
  Weight: 56.6996 kg

DRUGS (2)
  1. TEGRETOL-XR [Suspect]
     Indication: TRIGEMINAL NEURALGIA
     Dosage: 200 MG AT BEDTIME PO
     Route: 048
  2. CARBAMAZEPINE [Suspect]
     Indication: TRIGEMINAL NEURALGIA
     Dosage: 200 MG, 150 MG, 300 MG  AM, NOON, PM

REACTIONS (3)
  - ACUTE MYOCARDIAL INFARCTION [None]
  - BONE MARROW FAILURE [None]
  - PANCYTOPENIA [None]
